FAERS Safety Report 21903256 (Version 1)
Quarter: 2023Q1

REPORT INFORMATION
  Report Type: Spontaneous
  Country: US (occurrence: US)
  Receive Date: 20230124
  Receipt Date: 20230124
  Transmission Date: 20230418
  Serious: No
  Sender: FDA-Public Use
  Company Number: US-SA-SAC20230120001704

PATIENT
  Sex: Female

DRUGS (1)
  1. DUPIXENT [Suspect]
     Active Substance: DUPILUMAB
     Dosage: 300 MG, FREQUENCY: OTHER
     Route: 058

REACTIONS (7)
  - Respiratory disorder [Unknown]
  - Influenza [Unknown]
  - COVID-19 [Unknown]
  - Respiration abnormal [Unknown]
  - Eczema [Unknown]
  - Contusion [Unknown]
  - Drug ineffective [Unknown]
